FAERS Safety Report 11855918 (Version 1)
Quarter: 2015Q4

REPORT INFORMATION
  Report Type: Spontaneous
  Country: US (occurrence: None)
  Receive Date: 20151218
  Receipt Date: 20151218
  Transmission Date: 20160305
  Serious: No
  Sender: FDA-Public Use
  Company Number: None

PATIENT
  Age: 59 Year
  Sex: Female
  Weight: 69.85 kg

DRUGS (8)
  1. D3 [Concomitant]
     Active Substance: 25-HYDROXYCHOLECALCIFEROL, 5-TRANS-
  2. OMEPRAZOLE. [Concomitant]
     Active Substance: OMEPRAZOLE
  3. CALCIUM [Suspect]
     Active Substance: CALCIUM
  4. MIRVASO [Suspect]
     Active Substance: BRIMONIDINE TARTRATE
     Route: 061
     Dates: start: 20151111, end: 20151214
  5. ESTRADIOL. [Concomitant]
     Active Substance: ESTRADIOL
  6. C [Concomitant]
  7. LAMOTRIGINE. [Concomitant]
     Active Substance: LAMOTRIGINE
  8. RIZATRIPTAN. [Concomitant]
     Active Substance: RIZATRIPTAN

REACTIONS (10)
  - Pruritus [None]
  - Skin burning sensation [None]
  - Acne [None]
  - Dizziness [None]
  - Flushing [None]
  - Migraine [None]
  - Rosacea [None]
  - Skin discolouration [None]
  - Oropharyngeal pain [None]
  - Dry eye [None]

NARRATIVE: CASE EVENT DATE: 20151111
